FAERS Safety Report 7129940-X (Version None)
Quarter: 2010Q4

REPORT INFORMATION
  Report Type: 
  Country: None (occurrence: None)
  Receive Date: 20101130
  Receipt Date: 20100726
  Transmission Date: 20110411
  Serious: No
  Sender: FDA-Public Use
  Company Number: US-AMGEN-QUU407440

PATIENT

DRUGS (1)
  1. ARANESP [Suspect]
     Indication: ANAEMIA
     Dosage: 200 A?G, UNK
     Route: 058
     Dates: start: 20100415, end: 20100422

REACTIONS (3)
  - DYSPNOEA [None]
  - DYSURIA [None]
  - PELVIC DISCOMFORT [None]
